FAERS Safety Report 24951877 (Version 5)
Quarter: 2025Q3

REPORT INFORMATION
  Report Type: Report from Study
  Country: US (occurrence: US)
  Receive Date: 20250210
  Receipt Date: 20250825
  Transmission Date: 20251021
  Serious: Yes (Other)
  Sender: TAKEDA
  Company Number: US-TAKEDA-2025TUS014095

PATIENT
  Age: 59 Year
  Sex: Female

DRUGS (4)
  1. VEDOLIZUMAB [Suspect]
     Active Substance: VEDOLIZUMAB
     Indication: Colitis ulcerative
  2. VEDOLIZUMAB [Suspect]
     Active Substance: VEDOLIZUMAB
     Dosage: 300 MILLIGRAM, Q6WEEKS
  3. CALCIUM [Concomitant]
     Active Substance: CALCIUM
  4. PROLIA [Concomitant]
     Active Substance: DENOSUMAB

REACTIONS (24)
  - Coeliac disease [Not Recovered/Not Resolved]
  - Colitis ulcerative [Recovering/Resolving]
  - Infection susceptibility increased [Not Recovered/Not Resolved]
  - Sleep disorder [Unknown]
  - Myalgia [Recovered/Resolved]
  - Illness [Not Recovered/Not Resolved]
  - Malaise [Unknown]
  - Nasopharyngitis [Unknown]
  - Fatigue [Recovered/Resolved]
  - Nausea [Recovered/Resolved]
  - Arthralgia [Unknown]
  - Influenza [Not Recovered/Not Resolved]
  - Alopecia [Unknown]
  - Abdominal discomfort [Unknown]
  - Osteoporosis [Unknown]
  - Tooth loss [Unknown]
  - Malnutrition [Unknown]
  - Osteopenia [Unknown]
  - Arthropathy [Unknown]
  - Stress [Unknown]
  - Gastroenteritis viral [Not Recovered/Not Resolved]
  - Product dose omission issue [Unknown]
  - Inappropriate schedule of product administration [Unknown]
  - Hypersensitivity [Unknown]

NARRATIVE: CASE EVENT DATE: 20231102
